FAERS Safety Report 17984525 (Version 3)
Quarter: 2020Q3

REPORT INFORMATION
  Report Type: Spontaneous
  Country: US (occurrence: US)
  Receive Date: 20200706
  Receipt Date: 20200723
  Transmission Date: 20201103
  Serious: No
  Sender: FDA-Public Use
  Company Number: US-PFIZER INC-2020256745

PATIENT
  Age: 70 Year
  Sex: Female
  Weight: 87.09 kg

DRUGS (1)
  1. PREMARIN [Suspect]
     Active Substance: ESTROGENS, CONJUGATED
     Indication: URINARY TRACT INFECTION
     Dosage: 0.625MG 2 APPLICATIONS DAILY
     Route: 067
     Dates: start: 2018

REACTIONS (2)
  - Off label use [Unknown]
  - Product use in unapproved indication [Unknown]
